FAERS Safety Report 4303192-8 (Version None)
Quarter: 2004Q1

REPORT INFORMATION
  Report Type: 
  Country: None (occurrence: None)
  Receive Date: 20040223
  Receipt Date: 20040209
  Transmission Date: 20041129
  Serious: Yes (Hospitalization, Other)
  Sender: FDA-Public Use
  Company Number: 168491

PATIENT
  Age: 44 Year
  Sex: Female

DRUGS (9)
  1. AVONEX [Suspect]
     Indication: MULTIPLE SCLEROSIS
     Dates: start: 20000224
  2. ZOCOR [Concomitant]
  3. TIMOLOL MALEATE [Concomitant]
  4. ASPIRIN [Concomitant]
  5. POTASSIUM [Concomitant]
  6. ATENOLOL [Concomitant]
  7. AMANTADINE HCL [Concomitant]
  8. NEURONTIN [Concomitant]
  9. ZANAFLEX [Concomitant]

REACTIONS (7)
  - ABSCESS LIMB [None]
  - ATELECTASIS [None]
  - CERVICAL CORD COMPRESSION [None]
  - COLLAPSE OF LUNG [None]
  - INTERVERTEBRAL DISC PROTRUSION [None]
  - PNEUMOTHORAX [None]
  - SEPSIS [None]
